FAERS Safety Report 5370373-4 (Version None)
Quarter: 2007Q2

REPORT INFORMATION
  Report Type: 
  Country: None (occurrence: None)
  Receive Date: 20070626
  Receipt Date: 20061207
  Transmission Date: 20071010
  Serious: No
  Sender: FDA-Public Use
  Company Number: US-AMGEN-US202742

PATIENT
  Sex: Female
  Weight: 105.3 kg

DRUGS (10)
  1. ARANESP [Suspect]
     Indication: RENAL FAILURE CHRONIC
     Route: 058
     Dates: start: 20060911
  2. LIPITOR [Concomitant]
     Route: 065
  3. ISOSORBIDE DINITRATE [Concomitant]
     Route: 065
  4. VITAMIN CAP [Concomitant]
     Route: 065
  5. TOPROL-XL [Concomitant]
     Route: 065
  6. HYDROCHLOROTHIAZIDE [Concomitant]
     Route: 065
  7. SODIUM BICARBONATE [Concomitant]
     Route: 065
  8. LASIX [Concomitant]
     Route: 065
  9. PRINIVIL [Concomitant]
     Route: 065
  10. METOLAZONE [Concomitant]
     Route: 065

REACTIONS (3)
  - ABDOMINAL PAIN [None]
  - DIARRHOEA [None]
  - VISION BLURRED [None]
